FAERS Safety Report 21843496 (Version 1)
Quarter: 2023Q1

REPORT INFORMATION
  Report Type: Spontaneous
  Country: US (occurrence: US)
  Receive Date: 20230110
  Receipt Date: 20230110
  Transmission Date: 20230418
  Serious: No
  Sender: FDA-Public Use
  Company Number: US-drreddys-SPO/USA/22/0159255

PATIENT
  Age: 74 Year
  Sex: Male

DRUGS (17)
  1. LENALIDOMIDE [Suspect]
     Active Substance: LENALIDOMIDE
     Indication: Myelodysplastic syndrome
     Dosage: TAKE 1 CAPSULE BY MOUTH DAILY
     Route: 048
     Dates: start: 20221123
  2. METFORMIN [Concomitant]
     Active Substance: METFORMIN HYDROCHLORIDE
     Indication: Product used for unknown indication
  3. NITROGLYCERIN [Concomitant]
     Active Substance: NITROGLYCERIN
     Indication: Product used for unknown indication
  4. BRILINTA TAB 90MG [Concomitant]
     Indication: Product used for unknown indication
  5. CRESTOR TAB 40MG [Concomitant]
     Indication: Product used for unknown indication
  6. ELIQUIS [Concomitant]
     Active Substance: APIXABAN
     Indication: Product used for unknown indication
  7. HYDRALAZINE TAB 50MG [Concomitant]
     Indication: Product used for unknown indication
  8. IRON TAB 28MG [Concomitant]
     Indication: Product used for unknown indication
  9. ISOSORBIDE D TAB 40MG [Concomitant]
     Indication: Product used for unknown indication
  10. KEPPRA TAB 1000MG [Concomitant]
     Indication: Product used for unknown indication
  11. LINZESS CAP 290MCG [Concomitant]
     Indication: Product used for unknown indication
  12. LOSARTAN POT TAB 100MG [Concomitant]
     Indication: Product used for unknown indication
  13. PERCOCET TAB 5-325MG [Concomitant]
     Indication: Product used for unknown indication
     Dosage: 5-325MG
  14. PROTO IX PAC 40MG [Concomitant]
     Indication: Product used for unknown indication
  15. TIZANIDINE H CAP 6MG [Concomitant]
     Indication: Product used for unknown indication
  16. TOPROL XL TB2 200MG [Concomitant]
     Indication: Product used for unknown indication
  17. VITAMIN D3 LIQ 30MCG/15ML [Concomitant]
     Indication: Product used for unknown indication

REACTIONS (1)
  - Rash pruritic [Not Recovered/Not Resolved]
